FAERS Safety Report 6981516-0 (Version None)
Quarter: 2010Q3

REPORT INFORMATION
  Report Type: 
  Country: None (occurrence: None)
  Receive Date: 20100914
  Receipt Date: 20100902
  Transmission Date: 20110219
  Serious: Yes (Death, Other)
  Sender: FDA-Public Use
  Company Number: US-AMGEN-QUU436074

PATIENT
  Sex: Male

DRUGS (7)
  1. NPLATE [Suspect]
     Indication: IDIOPATHIC THROMBOCYTOPENIC PURPURA
     Dates: start: 20081205, end: 20090105
  2. CORTICOSTEROIDS [Concomitant]
  3. IMMU-G [Concomitant]
     Route: 042
  4. DANAZOL [Concomitant]
  5. RITUXIMAB [Concomitant]
  6. WINRHO [Concomitant]
  7. VINCRISTINE [Concomitant]

REACTIONS (2)
  - LYMPHOMA [None]
  - PLATELET COUNT INCREASED [None]
